FAERS Safety Report 7575603-6 (Version None)
Quarter: 2011Q2

REPORT INFORMATION
  Report Type: 
  Country: None (occurrence: None)
  Receive Date: 20110627
  Receipt Date: 20110615
  Transmission Date: 20111010
  Serious: Yes (Other)
  Sender: FDA-Public Use
  Company Number: JP-AMGEN-USASP2011030917

PATIENT
  Age: 70 Year
  Sex: Male

DRUGS (2)
  1. INSULIN [Concomitant]
  2. ARANESP [Suspect]
     Indication: HAEMODIALYSIS
     Dosage: 30 MG, QWK
     Route: 042
     Dates: start: 20080701, end: 20090301

REACTIONS (3)
  - ANTI-ERYTHROPOIETIN ANTIBODY POSITIVE [None]
  - APLASIA PURE RED CELL [None]
  - NEUTRALISING ANTIBODIES POSITIVE [None]
